FAERS Safety Report 8545743 (Version 3)
Quarter: 2013Q3

REPORT INFORMATION
  Report Type: Spontaneous
  Country: US (occurrence: US)
  Receive Date: 20120503
  Receipt Date: 20130916
  Transmission Date: 20140515
  Serious: Yes (Death, Hospitalization, Other)
  Sender: FDA-Public Use
  Company Number: US-BAXTER-2012BAX003548

PATIENT
  Age: 37 Year
  Sex: Male

DRUGS (10)
  1. DIANEAL LOW CALCIUM [Suspect]
     Indication: PERITONEAL DIALYSIS
     Route: 033
     Dates: start: 20120104, end: 20120331
  2. DIANEAL LOW CALCIUM [Suspect]
     Indication: PERITONEAL DIALYSIS
     Route: 033
     Dates: end: 201203
  3. DIANEAL LOW CALCIUM [Suspect]
     Indication: RENAL FAILURE CHRONIC
  4. DIANEAL LOW CALCIUM [Suspect]
     Indication: PERITONEAL DIALYSIS
     Route: 033
     Dates: end: 201203
  5. DIANEAL LOW CALCIUM [Suspect]
     Indication: RENAL FAILURE CHRONIC
  6. EXTRANEAL [Suspect]
     Indication: PERITONEAL DIALYSIS
     Route: 033
     Dates: start: 20120104, end: 20120331
  7. EXTRANEAL [Suspect]
     Indication: PERITONEAL DIALYSIS
  8. EXTRANEAL [Suspect]
     Indication: RENAL FAILURE CHRONIC
  9. MORPHINE [Suspect]
     Indication: ABDOMINAL PAIN UPPER
     Dates: start: 201203
  10. PHENERGAN [Suspect]
     Indication: ABDOMINAL PAIN UPPER
     Dates: start: 201203

REACTIONS (9)
  - Cerebrovascular accident [Fatal]
  - Sepsis [Fatal]
  - Dysgeusia [Recovering/Resolving]
  - Haematochezia [Unknown]
  - Respiratory arrest [Unknown]
  - Brain death [Unknown]
  - Abdominal pain upper [Unknown]
  - Vomiting [Recovering/Resolving]
  - Fluid overload [Unknown]
